FAERS Safety Report 9392127 (Version 1)
Quarter: 2013Q3

REPORT INFORMATION
  Report Type: Spontaneous
  Country: US (occurrence: US)
  Receive Date: 20130709
  Receipt Date: 20130709
  Transmission Date: 20140515
  Serious: Yes (Hospitalization)
  Sender: FDA-Public Use
  Company Number: US-GILEAD-2013-0078729

PATIENT
  Sex: Female

DRUGS (3)
  1. LETAIRIS [Suspect]
     Indication: PRODUCT USED FOR UNKNOWN INDICATION
     Dosage: 5 MG, QD
     Route: 048
  2. REVATIO [Concomitant]
  3. TRACLEER                           /01587701/ [Concomitant]
     Dates: start: 20120611, end: 20130214

REACTIONS (2)
  - Syncope [Unknown]
  - Unevaluable event [Unknown]
